FAERS Safety Report 12067353 (Version 1)
Quarter: 2016Q1

REPORT INFORMATION
  Report Type: Spontaneous
  Country: US (occurrence: US)
  Receive Date: 20160211
  Receipt Date: 20160211
  Transmission Date: 20160526
  Serious: Yes (Death)
  Sender: FDA-Public Use
  Company Number: US-009507513-1602USA004010

PATIENT
  Age: 1 Day
  Sex: Male
  Weight: 1.63 kg

DRUGS (2)
  1. ISENTRESS [Suspect]
     Active Substance: RALTEGRAVIR POTASSIUM
     Dosage: 800 MG, QD
     Route: 064
     Dates: start: 20150819, end: 20151210
  2. TRUVADA [Suspect]
     Active Substance: EMTRICITABINE\TENOFOVIR DISOPROXIL FUMARATE
     Dosage: 1 DF, QD
     Route: 064
     Dates: start: 20150819, end: 20151210

REACTIONS (2)
  - Foetal exposure during pregnancy [Recovered/Resolved]
  - Death neonatal [Fatal]

NARRATIVE: CASE EVENT DATE: 20151210
